FAERS Safety Report 8677946 (Version 2)
Quarter: 2013Q1

REPORT INFORMATION
  Report Type: Spontaneous
  Country: ES (occurrence: ES)
  Receive Date: 20120723
  Receipt Date: 20130122
  Transmission Date: 20140127
  Serious: Yes (Hospitalization, Other)
  Sender: FDA-Public Use
  Company Number: ES-ELI_LILLY_AND_COMPANY-ES201207005915

PATIENT
  Age: 71 Year
  Sex: Female
  Weight: 80 kg

DRUGS (9)
  1. FORSTEO [Suspect]
     Indication: OSTEOPOROSIS
     Dosage: 20 UG, QD
     Route: 058
     Dates: start: 20110924
  2. NEXIUM [Concomitant]
     Indication: PROPHYLAXIS
     Dosage: 1 DF, QD
     Route: 048
  3. EXELON [Concomitant]
     Indication: DEMENTIA ALZHEIMER^S TYPE
     Dosage: 1 DF, QD
     Route: 062
  4. XERISTAR [Concomitant]
     Indication: DEMENTIA ALZHEIMER^S TYPE
     Dosage: 1 DF, QD
     Route: 048
  5. MIRAPEXIN [Concomitant]
     Indication: DEMENTIA ALZHEIMER^S TYPE
     Dosage: 3 DF, QD
     Route: 048
  6. SINEMET PLUS [Concomitant]
     Indication: DEMENTIA ALZHEIMER^S TYPE
     Dosage: 3 DF, QD
     Route: 048
  7. HEPARIN LMW [Concomitant]
     Indication: DEMENTIA ALZHEIMER^S TYPE
     Dosage: 3500 IU, QD
     Route: 058
  8. SIMVASTATINA [Concomitant]
     Dosage: 20 MG, QD
     Route: 048
  9. ALPRAZOLAM [Concomitant]
     Dosage: 1 DF, QD

REACTIONS (4)
  - Femur fracture [Unknown]
  - Fall [Unknown]
  - Fracture nonunion [Recovering/Resolving]
  - Incorrect route of drug administration [Unknown]
